FAERS Safety Report 18654793 (Version 1)
Quarter: 2020Q4

REPORT INFORMATION
  Report Type: Spontaneous
  Country: US (occurrence: US)
  Receive Date: 20201223
  Receipt Date: 20201223
  Transmission Date: 20210114
  Serious: No
  Sender: FDA-Public Use
  Company Number: US-ELI_LILLY_AND_COMPANY-US202012009227

PATIENT
  Sex: Male

DRUGS (3)
  1. BASAGLAR [Suspect]
     Active Substance: INSULIN GLARGINE
     Indication: DIABETES MELLITUS
     Dosage: 48 U, DAILY (WITH DINNER)
     Route: 065
  2. BASAGLAR [Suspect]
     Active Substance: INSULIN GLARGINE
     Indication: DIABETES MELLITUS
     Dosage: 48 U, DAILY (WITH DINNER)
     Route: 065
  3. FIASP [Concomitant]
     Active Substance: INSULIN ASPART
     Indication: PRODUCT USED FOR UNKNOWN INDICATION
     Dosage: 20 U, UNKNOWN (BEFORE MEALS)

REACTIONS (7)
  - Blood glucose increased [Unknown]
  - Anxiety [Unknown]
  - Stress [Unknown]
  - Fatigue [Unknown]
  - Dyspnoea [Unknown]
  - Blood pressure increased [Unknown]
  - Orthopnoea [Unknown]
